FAERS Safety Report 16571779 (Version 3)
Quarter: 2019Q4

REPORT INFORMATION
  Report Type: Spontaneous
  Country: US (occurrence: US)
  Receive Date: 20190715
  Receipt Date: 20191004
  Transmission Date: 20200122
  Serious: No
  Sender: FDA-Public Use
  Company Number: US-PFIZER INC-2019298104

PATIENT
  Age: 55 Year
  Sex: Male
  Weight: 108.84 kg

DRUGS (12)
  1. LYRICA [Suspect]
     Active Substance: PREGABALIN
     Indication: PAIN
     Dosage: 150 MG, 2X/DAY
  2. LYRICA [Suspect]
     Active Substance: PREGABALIN
     Dosage: 150 MG, UNK
  3. PLAVIX [Concomitant]
     Active Substance: CLOPIDOGREL BISULFATE
     Dosage: 75 MG, 1X/DAY
  4. SIMVASTATIN. [Concomitant]
     Active Substance: SIMVASTATIN
     Dosage: 20 MG, 1X/DAY
  5. CARVEDILOL. [Concomitant]
     Active Substance: CARVEDILOL
     Dosage: UNK, 2X/DAY (6.25 2X A DAY)
  6. TRAMADOL HCL [Concomitant]
     Active Substance: TRAMADOL HYDROCHLORIDE
     Dosage: UNK, 2X/DAY(TRAMADOL HCL 50X2 )
  7. LYRICA [Suspect]
     Active Substance: PREGABALIN
     Dosage: 50 MG, UNK
  8. ALLOPURINOL. [Concomitant]
     Active Substance: ALLOPURINOL
     Dosage: 300 MG, 1X/DAY
  9. LYRICA [Suspect]
     Active Substance: PREGABALIN
     Indication: NECROSIS
     Dosage: 175 MG, UNK
  10. SYNTHROID [Concomitant]
     Active Substance: LEVOTHYROXINE SODIUM
     Dosage: 125 MG, 1X/DAY
  11. LOSARTAN/HCTZ [Concomitant]
     Active Substance: HYDROCHLOROTHIAZIDE\LOSARTAN
     Dosage: UNK, 1X/DAY, [LOSARTAN 100- HCTZ 25MG]
  12. FLUORESCEIN [Concomitant]
     Active Substance: FLUORESCEIN
     Dosage: 20 MG, 1X/DAY

REACTIONS (12)
  - Screaming [Not Recovered/Not Resolved]
  - Intentional product misuse [Unknown]
  - Vomiting [Unknown]
  - Withdrawal syndrome [Unknown]
  - Attention deficit/hyperactivity disorder [Unknown]
  - Agitation [Unknown]
  - Loss of personal independence in daily activities [Unknown]
  - Impatience [Not Recovered/Not Resolved]
  - Paranoia [Recovered/Resolved]
  - Tremor [Recovered/Resolved]
  - Abnormal behaviour [Not Recovered/Not Resolved]
  - Diarrhoea [Recovered/Resolved]
